FAERS Safety Report 4498571-2 (Version None)
Quarter: 2004Q4

REPORT INFORMATION
  Report Type: 
  Country: None (occurrence: None)
  Receive Date: 20041108
  Receipt Date: 20041101
  Transmission Date: 20050328
  Serious: Yes (Hospitalization, Other)
  Sender: FDA-Public Use
  Company Number: 2004225786US

PATIENT
  Age: 79 Year
  Sex: Male
  Weight: 90.7 kg

DRUGS (6)
  1. DETROL LA [Suspect]
     Dosage: 4 MG, QD
     Dates: start: 20040722, end: 20040726
  2. VIOXX [Suspect]
     Dosage: QD
     Dates: start: 20040701, end: 20040726
  3. HYTRIN (TERAZOZIN HYDROCHLORIDE) [Concomitant]
  4. VASOTEC [Concomitant]
  5. HYDROCHLOROTHIAZIDE [Concomitant]
  6. DYAZIDE [Concomitant]

REACTIONS (7)
  - BLOOD PRESSURE INCREASED [None]
  - DIARRHOEA [None]
  - DYSURIA [None]
  - JOINT SWELLING [None]
  - OEDEMA PERIPHERAL [None]
  - RENAL FAILURE ACUTE [None]
  - URINARY RETENTION [None]
